FAERS Safety Report 12104657 (Version 1)
Quarter: 2016Q1

REPORT INFORMATION
  Report Type: Spontaneous
  Country: FR (occurrence: FR)
  Receive Date: 20160223
  Receipt Date: 20160223
  Transmission Date: 20160526
  Serious: Yes (Hospitalization, Other)
  Sender: FDA-Public Use
  Company Number: FR-BRISTOL-MYERS SQUIBB COMPANY-BMS-2016-012009

PATIENT
  Age: 11 Year
  Sex: Female

DRUGS (4)
  1. IFOSFAMIDE EG [Suspect]
     Active Substance: IFOSFAMIDE
     Indication: EWING^S SARCOMA
     Dosage: 4080 MG, QD
     Route: 042
     Dates: start: 20160129, end: 20160131
  2. ETOPOPHOS [Suspect]
     Active Substance: ETOPOSIDE PHOSPHATE
     Indication: EWING^S SARCOMA
     Dosage: 200 MG, QD
     Route: 042
     Dates: start: 20160129, end: 20160131
  3. VINCRISTINE TEVA [Suspect]
     Active Substance: VINCRISTINE
     Indication: EWING^S SARCOMA
     Dosage: 2 MG, ONE TIME DOSE
     Route: 042
     Dates: start: 20160129
  4. DOXORUBICIN TEVA [Suspect]
     Active Substance: DOXORUBICIN
     Indication: EWING^S SARCOMA
     Dosage: 27 MG, QD
     Route: 042
     Dates: start: 20160129, end: 20160131

REACTIONS (3)
  - Encephalopathy [Recovered/Resolved]
  - Drug administered to patient of inappropriate age [Unknown]
  - Product use issue [Unknown]

NARRATIVE: CASE EVENT DATE: 20160130
